FAERS Safety Report 6887814-3 (Version None)
Quarter: 2010Q3

REPORT INFORMATION
  Report Type: 
  Country: None (occurrence: None)
  Receive Date: 20100730
  Receipt Date: 20100719
  Transmission Date: 20110219
  Serious: Yes (Other)
  Sender: FDA-Public Use
  Company Number: FR-SANOFI-AVENTIS-2010SA042128

PATIENT
  Age: 38 Year
  Sex: Male

DRUGS (11)
  1. LOVENOX [Suspect]
     Indication: THROMBOSIS PROPHYLAXIS
     Route: 058
     Dates: start: 20100521, end: 20100607
  2. KEPPRA [Suspect]
     Route: 042
     Dates: start: 20100528, end: 20100607
  3. HUMALOG [Suspect]
     Dosage: ACCORDING PROTOCOLE
     Route: 058
     Dates: start: 20100528, end: 20100607
  4. DEPAKENE [Concomitant]
     Route: 048
     Dates: start: 20100201, end: 20100528
  5. DEPAKENE [Concomitant]
     Dates: start: 20100601
  6. VALACYCLOVIR [Concomitant]
     Dates: start: 20100315, end: 20100520
  7. BACTRIM [Concomitant]
     Indication: PROPHYLAXIS
     Route: 048
     Dates: start: 20100315, end: 20100520
  8. CALCIUM [Concomitant]
     Indication: PROPHYLAXIS
     Dates: start: 20100315
  9. CORTANCYL [Concomitant]
     Indication: LYMPHOMA
     Route: 048
     Dates: start: 20091201, end: 20100414
  10. CORTANCYL [Concomitant]
     Route: 048
     Dates: start: 20100415
  11. VITAMIN D [Concomitant]
     Indication: PROPHYLAXIS
     Route: 048
     Dates: start: 20100315

REACTIONS (1)
  - EOSINOPHILIA [None]
